FAERS Safety Report 9262611 (Version 1)
Quarter: 2013Q2

REPORT INFORMATION
  Report Type: Spontaneous
  Country: US (occurrence: US)
  Receive Date: 20130430
  Receipt Date: 20130430
  Transmission Date: 20140414
  Serious: Yes (Hospitalization, Other)
  Sender: FDA-Public Use
  Company Number: US-ELI_LILLY_AND_COMPANY-US201304007307

PATIENT
  Sex: Female
  Weight: 58.96 kg

DRUGS (17)
  1. PROZAC [Suspect]
     Indication: DEPRESSION
     Dosage: 1 DF, QD
  2. EFFEXOR XR [Concomitant]
     Indication: DEPRESSION
     Dosage: 300 MG, QD
     Route: 048
     Dates: start: 2001
  3. LEVOTHYROXINE [Concomitant]
     Indication: HYPOTHYROIDISM
     Dosage: 200 UG, QD
  4. MULTIVITAMINS [Concomitant]
     Dosage: 1 DF, QD
  5. BABY ASPIRIN [Concomitant]
     Dosage: 1 DF, QD
  6. PROGRAF [Concomitant]
     Indication: IMMUNOSUPPRESSANT DRUG THERAPY
     Dosage: 3 MG, BID
     Route: 048
  7. CIMETIDINE [Concomitant]
     Indication: IMPAIRED GASTRIC EMPTYING
     Dosage: 20 MG, BID
  8. METOCLOPRAMIDE [Concomitant]
     Indication: IMPAIRED GASTRIC EMPTYING
     Dosage: 10 MG, BID
  9. BUPROPION HCL ER [Concomitant]
     Indication: DEPRESSION
     Dosage: 200 MG, BID
  10. MYFORTIC [Concomitant]
     Indication: IMMUNOSUPPRESSANT DRUG THERAPY
     Dosage: 360 MG, BID
  11. BACTRIM [Concomitant]
     Dosage: 1 DF, QD
  12. TRAZODONE [Concomitant]
     Indication: SLEEP DISORDER
     Dosage: 100 MG, QD
  13. PERI-COLACE [Concomitant]
     Dosage: 1 DF, QD
  14. PREDNISONE [Concomitant]
     Dosage: 5 MG, QD
  15. FAMOTIDINE [Concomitant]
     Dosage: 1 DF, UNKNOWN
  16. ENALAPRIL [Concomitant]
     Dosage: 1 DF, QD
  17. CALCIUM [Concomitant]

REACTIONS (2)
  - Diabetes mellitus [Unknown]
  - Drug ineffective [Unknown]
